FAERS Safety Report 8136425-0 (Version None)
Quarter: 2012Q1

REPORT INFORMATION
  Report Type: 
  Country: None (occurrence: None)
  Receive Date: 20120209
  Receipt Date: 20120202
  Transmission Date: 20120608
  Serious: Yes (Hospitalization, Disabling)
  Sender: FDA-Public Use
  Company Number: 2009SP003346

PATIENT
  Age: 62 Year
  Sex: Female
  Weight: 46.6 kg

DRUGS (8)
  1. DEXAMETHASONE [Concomitant]
  2. PROPOFOL [Concomitant]
  3. TEMOZOLOMIDE [Suspect]
     Indication: GLIOBLASTOMA
     Dosage: 105 MG;QD;PO
     Route: 048
     Dates: start: 20081005, end: 20081214
  4. IRON SULPHATE [Concomitant]
  5. CEFUROXIME [Concomitant]
  6. ROCURONIUM BROMIDE [Concomitant]
  7. ACETAMINOPHEN [Concomitant]
  8. LANSOPRAZOLE [Concomitant]

REACTIONS (3)
  - HEPATITIS [None]
  - OEDEMA PERIPHERAL [None]
  - CHOLESTASIS [None]
